FAERS Safety Report 4375156-X (Version None)
Quarter: 2004Q2

REPORT INFORMATION
  Report Type: 
  Country: None (occurrence: None)
  Receive Date: 20040603
  Receipt Date: 20040520
  Transmission Date: 20050107
  Serious: Yes (Death)
  Sender: FDA-Public Use
  Company Number: JP-JNJFOC-20040504986

PATIENT
  Age: 81 Year
  Sex: Male

DRUGS (5)
  1. FENTANYL [Suspect]
     Indication: CANCER PAIN
     Dosage: 5 MG, 1 IN 3 DAY, TRANSDERMAL
     Route: 062
     Dates: start: 20040120, end: 20040131
  2. MORPHINE HYDROCHLORIDE [Concomitant]
  3. DICLOFENAC SODIUM [Concomitant]
  4. GABEXATE MESILATE [Concomitant]
  5. RISPERDAL [Concomitant]

REACTIONS (1)
  - DEATH [None]
